FAERS Safety Report 15099205 (Version 1)
Quarter: 2018Q2

REPORT INFORMATION
  Report Type: Spontaneous
  Country: US (occurrence: US)
  Receive Date: 20180611
  Receipt Date: 20180611
  Transmission Date: 20180711
  Serious: Yes (Disabling, Other)
  Sender: FDA-Public Use
  Company Number: None

PATIENT
  Age: 52 Year
  Sex: Male
  Weight: 89.81 kg

DRUGS (6)
  1. MULTIVITAMIN [Concomitant]
     Active Substance: VITAMINS
  2. XIIDRA [Concomitant]
     Active Substance: LIFITEGRAST
  3. AMLODIPINE [Concomitant]
     Active Substance: AMLODIPINE BESYLATE
  4. OMEPRAZOLE. [Concomitant]
     Active Substance: OMEPRAZOLE
  5. RANITIDINE. [Concomitant]
     Active Substance: RANITIDINE
  6. AMLODIPINE BESYLATE. [Suspect]
     Active Substance: AMLODIPINE BESYLATE
     Indication: HYPERTENSION
     Dosage: ?          QUANTITY:1 DF DOSAGE FORM;?
     Route: 048
     Dates: start: 2015, end: 201712

REACTIONS (24)
  - Fatigue [None]
  - Somnolence [None]
  - Hypersensitivity [None]
  - Abnormal dreams [None]
  - Pollakiuria [None]
  - Dry mouth [None]
  - Oedema [None]
  - Neuropathy peripheral [None]
  - Flatulence [None]
  - Insomnia [None]
  - Nervousness [None]
  - Depersonalisation/derealisation disorder [None]
  - Tremor [None]
  - Diarrhoea [None]
  - Gastrooesophageal reflux disease [None]
  - Thirst [None]
  - Hypoaesthesia [None]
  - Paraesthesia [None]
  - Malaise [None]
  - Muscle spasms [None]
  - Constipation [None]
  - Back pain [None]
  - Visual impairment [None]
  - Abdominal pain [None]
